FAERS Safety Report 17089267 (Version 1)
Quarter: 2019Q4

REPORT INFORMATION
  Report Type: Report from Study
  Country: PK (occurrence: PK)
  Receive Date: 20191128
  Receipt Date: 20191128
  Transmission Date: 20200122
  Serious: Yes (Other)
  Sender: FDA-Public Use
  Company Number: PHHY2019PK005635

PATIENT
  Age: 28 Year
  Sex: Male
  Weight: 56 kg

DRUGS (4)
  1. GLIVEC [Suspect]
     Active Substance: IMATINIB MESYLATE
     Indication: CHRONIC MYELOID LEUKAEMIA
     Dosage: 600 MG (6 DF), QD
     Route: 048
     Dates: start: 20171219, end: 20190109
  2. TASIGNA [Suspect]
     Active Substance: NILOTINIB
     Dosage: 600 MG (2-0-1)
     Route: 048
     Dates: start: 20190422, end: 20191118
  3. TASIGNA [Suspect]
     Active Substance: NILOTINIB
     Dosage: 200 MG, QD
     Route: 048
     Dates: start: 20191119
  4. TASIGNA [Suspect]
     Active Substance: NILOTINIB
     Indication: CHRONIC MYELOID LEUKAEMIA
     Dosage: 2 DF, BID (2-0-2)
     Route: 048
     Dates: start: 20171220

REACTIONS (4)
  - Inappropriate schedule of product administration [Unknown]
  - Bicytopenia [Not Recovered/Not Resolved]
  - Pancytopenia [Not Recovered/Not Resolved]
  - Thrombocytopenia [Not Recovered/Not Resolved]

NARRATIVE: CASE EVENT DATE: 20190110
